FAERS Safety Report 19127608 (Version 1)
Quarter: 2021Q2

REPORT INFORMATION
  Report Type: Spontaneous
  Country: US (occurrence: US)
  Receive Date: 20210413
  Receipt Date: 20210413
  Transmission Date: 20210717
  Serious: Yes (Disabling)
  Sender: FDA-Public Use
  Company Number: None

PATIENT
  Age: 37 Year
  Sex: Male
  Weight: 96.75 kg

DRUGS (2)
  1. MESTINON [Concomitant]
     Active Substance: PYRIDOSTIGMINE BROMIDE
  2. PREDNISONE. [Suspect]
     Active Substance: PREDNISONE
     Indication: BACK INJURY
     Dates: start: 20201214, end: 20210102

REACTIONS (4)
  - Anxiety disorder [None]
  - Eating disorder [None]
  - Impaired work ability [None]
  - Condition aggravated [None]

NARRATIVE: CASE EVENT DATE: 20201231
